FAERS Safety Report 13896204 (Version 1)
Quarter: 2017Q3

REPORT INFORMATION
  Report Type: Spontaneous
  Country: US (occurrence: None)
  Receive Date: 20170816
  Receipt Date: 20170816
  Transmission Date: 20171127
  Serious: Yes (Other)
  Sender: FDA-Public Use
  Company Number: None

PATIENT
  Age: 78 Year
  Sex: Female
  Weight: 88.45 kg

DRUGS (8)
  1. BIOTIN [Concomitant]
     Active Substance: BIOTIN
  2. CAL MEG CITRATE COMPLEX [Concomitant]
  3. METAMUSIL [Concomitant]
  4. LEVOFLOXACIN 500MG [Suspect]
     Active Substance: LEVOFLOXACIN
     Indication: EAR PAIN
     Dosage: 1 TABLET DAILY MOUTH
     Route: 048
     Dates: start: 20150717, end: 20150723
  5. ASPIRIN. [Concomitant]
     Active Substance: ASPIRIN
  6. LEVOFLOXACIN 500MG [Suspect]
     Active Substance: LEVOFLOXACIN
     Indication: HEADACHE
     Dosage: 1 TABLET DAILY MOUTH
     Route: 048
     Dates: start: 20150717, end: 20150723
  7. MELATONIN [Concomitant]
     Active Substance: MELATONIN
  8. MIRALEX [Concomitant]

REACTIONS (14)
  - Balance disorder [None]
  - Constipation [None]
  - Dry eye [None]
  - Insomnia [None]
  - Candida infection [None]
  - Shoulder arthroplasty [None]
  - Fatigue [None]
  - Vertigo [None]
  - Hypoaesthesia [None]
  - Musculoskeletal pain [None]
  - Pain in extremity [None]
  - Depression [None]
  - Vision blurred [None]
  - Nausea [None]

NARRATIVE: CASE EVENT DATE: 20170717
